FAERS Safety Report 19521381 (Version 1)
Quarter: 2021Q3

REPORT INFORMATION
  Report Type: Spontaneous
  Country: BR (occurrence: BR)
  Receive Date: 20210712
  Receipt Date: 20210712
  Transmission Date: 20211014
  Serious: Yes (Hospitalization)
  Sender: FDA-Public Use
  Company Number: BR-VERTEX PHARMACEUTICALS-2021-010334

PATIENT
  Age: 7 Year
  Sex: Male

DRUGS (4)
  1. KALYDECO [Suspect]
     Active Substance: IVACAFTOR
     Dosage: 150 MG, BID (REINTRODUCED)
     Route: 048
     Dates: start: 201912
  2. KALYDECO [Suspect]
     Active Substance: IVACAFTOR
     Dosage: 150 MG, BID (REINTRODUCED AT NORMAL DOSE)
     Route: 048
     Dates: start: 202104
  3. KALYDECO [Suspect]
     Active Substance: IVACAFTOR
     Indication: CYSTIC FIBROSIS
     Dosage: 150 MG, BID
     Route: 048
     Dates: start: 201903, end: 201909
  4. KALYDECO [Suspect]
     Active Substance: IVACAFTOR
     Dosage: 150 MG, BID (REDUCED DOSE)
     Route: 048
     Dates: start: 202012

REACTIONS (6)
  - Abdominal pain [Unknown]
  - Hepatomegaly [Unknown]
  - Constipation [Unknown]
  - Hepatic enzyme increased [Unknown]
  - Weight gain poor [Unknown]
  - Pancreatic failure [Unknown]

NARRATIVE: CASE EVENT DATE: 2019
